FAERS Safety Report 4861094-2 (Version None)
Quarter: 2005Q4

REPORT INFORMATION
  Report Type: 
  Country: None (occurrence: None)
  Receive Date: 20051220
  Receipt Date: 20051213
  Transmission Date: 20060501
  Serious: Yes (Other)
  Sender: FDA-Public Use
  Company Number: GB-GLAXOSMITHKLINE-B0403574A

PATIENT
  Age: 60 Year
  Sex: Female
  Weight: 95 kg

DRUGS (6)
  1. ROSIGLITAZONE [Suspect]
     Indication: BLOOD GLUCOSE INCREASED
     Dosage: 4MG PER DAY
     Route: 048
     Dates: start: 20050825, end: 20051110
  2. BENDROFLUMETHIAZIDE [Concomitant]
     Dosage: 2.5MG PER DAY
     Route: 048
     Dates: start: 20050317
  3. GLIMEPIRIDE [Concomitant]
     Indication: BLOOD GLUCOSE INCREASED
     Dosage: 4MG PER DAY
     Route: 048
     Dates: start: 20031028
  4. RAMIPRIL [Concomitant]
     Dosage: 10MG PER DAY
     Route: 048
     Dates: start: 19970101
  5. ATORVASTATIN [Concomitant]
     Dosage: 10MG PER DAY
     Route: 048
     Dates: start: 20040628
  6. ASPIRIN [Concomitant]
     Indication: ANTIPLATELET THERAPY
     Dosage: 75MG PER DAY
     Route: 048
     Dates: start: 20050126

REACTIONS (3)
  - DYSPNOEA [None]
  - FLUID RETENTION [None]
  - GASTROINTESTINAL DISORDER [None]
